FAERS Safety Report 6754551-5 (Version None)
Quarter: 2010Q2

REPORT INFORMATION
  Report Type: 
  Country: None (occurrence: None)
  Receive Date: 20100603
  Receipt Date: 20100526
  Transmission Date: 20101027
  Serious: Yes (Hospitalization, Other)
  Sender: FDA-Public Use
  Company Number: BE-ABBOTT-10P-013-0632912-00

PATIENT
  Sex: Male

DRUGS (6)
  1. HUMIRA [Suspect]
     Indication: ANKYLOSING SPONDYLITIS
     Route: 058
     Dates: start: 20061201, end: 20100127
  2. IBUPROFEN [Suspect]
     Indication: ANAL FISTULA
     Dates: start: 20100120
  3. IBUPROFEN [Suspect]
     Dates: start: 20100201
  4. UNSPECIFIED NSAID [Suspect]
     Indication: DRUG USE FOR UNKNOWN INDICATION
     Dates: start: 20091201
  5. UNSPECIFIED NSAID [Suspect]
  6. ZOLPIDEM [Concomitant]
     Indication: DRUG USE FOR UNKNOWN INDICATION

REACTIONS (10)
  - ABSCESS [None]
  - ANAL FISTULA [None]
  - ANKYLOSING SPONDYLITIS [None]
  - CHEST DISCOMFORT [None]
  - CROHN'S DISEASE [None]
  - HYPERCHOLESTEROLAEMIA [None]
  - HYPERTENSION [None]
  - LYMPHADENOPATHY [None]
  - NEPHROTIC SYNDROME [None]
  - UPPER RESPIRATORY TRACT INFECTION [None]
